FAERS Safety Report 24258296 (Version 4)
Quarter: 2024Q4

REPORT INFORMATION
  Report Type: Spontaneous
  Country: US (occurrence: US)
  Receive Date: 20240828
  Receipt Date: 20241223
  Transmission Date: 20250115
  Serious: Yes (Other)
  Sender: PFIZER
  Company Number: US-PFIZER INC-202400242567

PATIENT
  Age: 56 Year
  Sex: Female
  Weight: 64.41 kg

DRUGS (13)
  1. IBRANCE [Suspect]
     Active Substance: PALBOCICLIB
     Indication: Inflammatory carcinoma of breast stage IV
     Dosage: 125 MG, FOR 14 DAYS THEN OFF FOR 14 DAYS
     Route: 048
     Dates: start: 201608
  2. IBRANCE [Suspect]
     Active Substance: PALBOCICLIB
     Dosage: 100 MG
  3. IBRANCE [Suspect]
     Active Substance: PALBOCICLIB
     Dosage: 75 MG, 2 WEEKS ON AND 2 WEEKS OFF, REPEAT THE CYCLE
     Route: 048
     Dates: start: 201611
  4. ANASTROZOLE [Concomitant]
     Active Substance: ANASTROZOLE
     Indication: Inflammatory carcinoma of breast stage IV
     Dosage: 1 MG, DAILY
     Dates: start: 2022
  5. ATORVASTATIN [Concomitant]
     Active Substance: ATORVASTATIN
     Indication: Blood cholesterol increased
     Dosage: 100 MG, DAILY
     Dates: start: 2017
  6. FISH OIL [Concomitant]
     Active Substance: FISH OIL
     Dosage: UNK
  7. GARLIC [Concomitant]
     Active Substance: GARLIC
     Indication: Blood cholesterol increased
     Dosage: UNK
  8. JARDIANCE [Concomitant]
     Active Substance: EMPAGLIFLOZIN
     Indication: Type 2 diabetes mellitus
     Dosage: 10 MG, DAILY
  9. LETROZOLE [Concomitant]
     Active Substance: LETROZOLE
     Indication: Inflammatory carcinoma of breast stage IV
     Dosage: 2.5 MG, DAILY
     Dates: end: 2022
  10. LETROZOLE [Concomitant]
     Active Substance: LETROZOLE
     Indication: Aromatase inhibition therapy
  11. JANUVIA [Concomitant]
     Active Substance: SITAGLIPTIN PHOSPHATE
     Indication: Type 2 diabetes mellitus
     Dosage: 100 MG, DAILY
  12. VITAMINS NOS [Concomitant]
     Active Substance: VITAMINS
     Dosage: UNK
  13. VITAMIN C [Concomitant]
     Active Substance: ASCORBIC ACID
     Dosage: 500 MG, DAILY

REACTIONS (8)
  - Neutropenia [Recovered/Resolved]
  - Pruritus [Recovered/Resolved]
  - Mood swings [Recovering/Resolving]
  - Arthralgia [Recovering/Resolving]
  - Sensitivity to weather change [Recovering/Resolving]
  - Cholelithiasis [Not Recovered/Not Resolved]
  - Off label use [Unknown]
  - Product use issue [Unknown]

NARRATIVE: CASE EVENT DATE: 20160801
